FAERS Safety Report 26191706 (Version 1)
Quarter: 2025Q4

REPORT INFORMATION
  Report Type: Spontaneous
  Country: US (occurrence: US)
  Receive Date: 20251223
  Receipt Date: 20251223
  Transmission Date: 20260117
  Serious: Yes (Other)
  Sender: REVANCE THERAPEUTICS
  Company Number: US-REVANCE THERAPEUTICS INC.-US-REV-2025-000915

PATIENT

DRUGS (1)
  1. DAXIBOTULINUMTOXIN A-LANM [Suspect]
     Active Substance: DAXIBOTULINUMTOXIN A-LANM
     Indication: Skin wrinkling
     Dosage: 39 UNITS: 21 UNITS AT GLABELLA AND 18 UNITS (9 UNITS IN EACH SIDE) AT CROW^S FEET
     Route: 065
     Dates: start: 20251113

REACTIONS (4)
  - Ophthalmoplegia [Unknown]
  - Diplopia [Unknown]
  - Underdose [Unknown]
  - Off label use [Unknown]

NARRATIVE: CASE EVENT DATE: 20251113
